FAERS Safety Report 9062380 (Version 1)
Quarter: 2013Q1

REPORT INFORMATION
  Report Type: Spontaneous
  Country: IT (occurrence: IT)
  Receive Date: 20130127
  Receipt Date: 20130127
  Transmission Date: 20140127
  Serious: Yes (Hospitalization)
  Sender: FDA-Public Use
  Company Number: IT-009507513-1301ITA011805

PATIENT
  Age: 88 Year
  Sex: Female

DRUGS (6)
  1. MODURETIC 5-50 [Suspect]
     Indication: HYPERTENSION
     Dosage: 5MG + 50 MG,QD
     Route: 048
     Dates: start: 20120901, end: 20130103
  2. LOSARTAN [Suspect]
     Indication: HYPERTENSION
     Dosage: 50 MG, QD
     Dates: start: 20120903, end: 20130103
  3. LASIX (FUROSEMIDE SODIUM) [Suspect]
     Indication: HYPERTENSION
     Dosage: (25MG STRENGTH ) 50 MG, QD
     Route: 048
     Dates: start: 20120903, end: 20130103
  4. LASIX (FUROSEMIDE SODIUM) [Suspect]
     Dosage: 25 MG, QD
     Route: 048
     Dates: start: 20130104
  5. COUMADIN [Concomitant]
     Route: 048
  6. ZOLOFT [Concomitant]

REACTIONS (2)
  - Hyponatraemia [Recovering/Resolving]
  - Orthostatic hypotension [Recovering/Resolving]
